FAERS Safety Report 9165843 (Version 4)
Quarter: 2013Q3

REPORT INFORMATION
  Report Type: Spontaneous
  Country: US (occurrence: None)
  Receive Date: 20130304
  Receipt Date: 20130712
  Transmission Date: 20140515
  Serious: Yes (Hospitalization)
  Sender: FDA-Public Use
  Company Number: 145798

PATIENT
  Age: 58 Year
  Sex: Female
  Weight: 66 kg

DRUGS (1)
  1. LEUCOVORIN CALCIUM [Suspect]
     Indication: COLORECTAL CANCER METASTATIC
     Dosage: 400  MG/MW EVERY 2 WEEKS, UNKNOWN
     Dates: start: 20130123

REACTIONS (5)
  - Febrile neutropenia [None]
  - Hydronephrosis [None]
  - Flank pain [None]
  - Urinary tract infection [None]
  - Renal impairment [None]
